FAERS Safety Report 10611948 (Version 2)
Quarter: 2014Q4

REPORT INFORMATION
  Report Type: Spontaneous
  Country: US (occurrence: US)
  Receive Date: 20141126
  Receipt Date: 20141217
  Transmission Date: 20150529
  Serious: Yes (Death, Life-Threatening, Hospitalization, Other)
  Sender: FDA-Public Use
  Company Number: US-MERCK-1411USA012616

PATIENT
  Sex: Female
  Weight: 74.83 kg

DRUGS (3)
  1. JANUVIA [Suspect]
     Active Substance: SITAGLIPTIN PHOSPHATE
     Indication: TYPE 2 DIABETES MELLITUS
     Dosage: 100 MG, QD
     Route: 048
     Dates: start: 20110117, end: 20131024
  2. JANUMET [Suspect]
     Active Substance: METFORMIN HYDROCHLORIDE\SITAGLIPTIN PHOSPHATE
     Indication: TYPE 2 DIABETES MELLITUS
     Dosage: 50-1000 MG BID
     Route: 048
     Dates: start: 20090415, end: 20090803
  3. JANUMET [Suspect]
     Active Substance: METFORMIN HYDROCHLORIDE\SITAGLIPTIN PHOSPHATE
     Dosage: 50-1000 MG BID
     Route: 048
     Dates: start: 20110104, end: 20110203

REACTIONS (29)
  - Small cell lung cancer [Unknown]
  - Sarcoidosis [Unknown]
  - Anaemia [Unknown]
  - Coronary artery disease [Unknown]
  - Wrist fracture [Unknown]
  - Gastrooesophageal reflux disease [Unknown]
  - Ankle operation [Unknown]
  - Arthritis [Unknown]
  - Cholecystectomy [Unknown]
  - Acute myocardial infarction [Unknown]
  - Chronic kidney disease [Not Recovered/Not Resolved]
  - Renal failure [Unknown]
  - Gout [Unknown]
  - Intracardiac thrombus [Unknown]
  - Stent placement [Unknown]
  - Appendicectomy [Unknown]
  - Ischaemic cardiomyopathy [Unknown]
  - Cerebrovascular accident [Unknown]
  - Brain cancer metastatic [Unknown]
  - Pancreatic carcinoma metastatic [Unknown]
  - Coronary artery bypass [Unknown]
  - Renal failure [Unknown]
  - Coronary angioplasty [Unknown]
  - Fall [Unknown]
  - Asthenia [Unknown]
  - Death [Fatal]
  - Metastases to liver [Unknown]
  - Hypertension [Unknown]
  - Hysterectomy [Unknown]

NARRATIVE: CASE EVENT DATE: 201101
